FAERS Safety Report 12310893 (Version 1)
Quarter: 2016Q2

REPORT INFORMATION
  Report Type: Spontaneous
  Country: CA (occurrence: CA)
  Receive Date: 20160427
  Receipt Date: 20160427
  Transmission Date: 20160815
  Serious: Yes (Other)
  Sender: FDA-Public Use
  Company Number: CA-BAYER-2016-080592

PATIENT
  Age: 29 Year
  Sex: Female
  Weight: 78 kg

DRUGS (1)
  1. YASMIN [Suspect]
     Active Substance: DROSPIRENONE\ETHINYL ESTRADIOL
     Indication: POLYCYSTIC OVARIES
     Dosage: UNK
     Route: 065

REACTIONS (7)
  - Fatigue [Unknown]
  - Suicidal ideation [Unknown]
  - Insomnia [Unknown]
  - Crying [Unknown]
  - Emotional distress [Unknown]
  - Anxiety [Unknown]
  - Depression [Unknown]
